FAERS Safety Report 4472542-4 (Version None)
Quarter: 2004Q4

REPORT INFORMATION
  Report Type: 
  Country: None (occurrence: None)
  Receive Date: 20041008
  Receipt Date: 20040922
  Transmission Date: 20050328
  Serious: Yes (Hospitalization)
  Sender: FDA-Public Use
  Company Number: 201925

PATIENT
  Age: 16 Year
  Sex: Female

DRUGS (1)
  1. AVONEX [Suspect]
     Indication: PROGRESSIVE MULTIPLE SCLEROSIS
     Dosage: 30 MCG QW IM
     Route: 030
     Dates: start: 20040318, end: 20040720

REACTIONS (14)
  - ANURIA [None]
  - DIPLOPIA [None]
  - DIZZINESS [None]
  - EYE DISORDER [None]
  - HAEMATOCRIT DECREASED [None]
  - HYPOAESTHESIA [None]
  - LYMPHOCYTE PERCENTAGE DECREASED [None]
  - MEAN CELL HAEMOGLOBIN CONCENTRATION INCREASED [None]
  - MEAN CELL HAEMOGLOBIN INCREASED [None]
  - MONOCYTE COUNT INCREASED [None]
  - MULTIPLE SCLEROSIS RELAPSE [None]
  - PUPILS UNEQUAL [None]
  - RED BLOOD CELL COUNT DECREASED [None]
  - WHITE BLOOD CELL COUNT DECREASED [None]
